FAERS Safety Report 14184217 (Version 1)
Quarter: 2017Q4

REPORT INFORMATION
  Report Type: Spontaneous
  Country: US (occurrence: US)
  Receive Date: 20171113
  Receipt Date: 20171113
  Transmission Date: 20180321
  Serious: No
  Sender: FDA-Public Use
  Company Number: US-MYLANLABS-2017M1069740

PATIENT
  Sex: Male

DRUGS (8)
  1. FENTANYL. [Suspect]
     Active Substance: FENTANYL
     Dosage: 200 ?G, UNK
  2. FENTANYL. [Suspect]
     Active Substance: FENTANYL
     Dosage: 250 ?G, UNK
  3. FENTANYL. [Suspect]
     Active Substance: FENTANYL
     Dosage: 75 ?G, UNK
  4. FENTANYL. [Suspect]
     Active Substance: FENTANYL
     Dosage: 150 ?G, UNK
  5. FENTANYL. [Suspect]
     Active Substance: FENTANYL
     Indication: SPINAL PAIN
     Dosage: 75 ?G, UNK
  6. MS CONTIN [Concomitant]
     Active Substance: MORPHINE SULFATE
     Indication: HEPATIC CANCER
     Dosage: 200 MG, BID
  7. DILAUDID [Concomitant]
     Active Substance: HYDROMORPHONE HYDROCHLORIDE
     Indication: HEPATIC CANCER
     Dosage: 8 MG, QID
  8. MORPHINE [Concomitant]
     Active Substance: MORPHINE
     Indication: SPINAL PAIN
     Dosage: UNK

REACTIONS (1)
  - Nervous system disorder [Unknown]
